FAERS Safety Report 4648190-X (Version None)
Quarter: 2005Q2

REPORT INFORMATION
  Report Type: 
  Country: None (occurrence: None)
  Receive Date: 20050331
  Receipt Date: 20050112
  Transmission Date: 20051028
  Serious: No
  Sender: FDA-Public Use
  Company Number: 05P-163-0286343-00

PATIENT
  Age: 59 Year
  Sex: Female
  Weight: 97.977 kg

DRUGS (14)
  1. HUMIRA [Suspect]
     Indication: RHEUMATOID ARTHRITIS
     Dosage: 40 MG, 1 IN 2 WK, SUBCUTANEOUS;  40 MG, 1 IN 2 WK, SUBCUTANEOUS
     Route: 058
     Dates: start: 20040101, end: 20040901
  2. HUMIRA [Suspect]
     Indication: RHEUMATOID ARTHRITIS
     Dosage: 40 MG, 1 IN 2 WK, SUBCUTANEOUS;  40 MG, 1 IN 2 WK, SUBCUTANEOUS
     Route: 058
     Dates: start: 20050101
  3. BOVINE SOLUTION [Concomitant]
  4. VIAC [Concomitant]
  5. FUROSEMIDE [Concomitant]
  6. METHOTREXATE SODIUM [Concomitant]
  7. NAPROXEN [Concomitant]
  8. PREDNISONE TAB [Concomitant]
  9. FOLIC ACID [Concomitant]
  10. VICODIN [Concomitant]
  11. CYCLOBENZAPRINE HYDROCHLORIDE [Concomitant]
  12. MISOPROSTOL [Concomitant]
  13. CALCIUM GLUCONATE [Concomitant]
  14. MULTI-VITAMINS [Concomitant]

REACTIONS (2)
  - BRONCHITIS [None]
  - PNEUMONIA [None]
